FAERS Safety Report 14578819 (Version 3)
Quarter: 2018Q1

REPORT INFORMATION
  Report Type: Spontaneous
  Country: ES (occurrence: ES)
  Receive Date: 20180227
  Receipt Date: 20180322
  Transmission Date: 20180509
  Serious: Yes (Other)
  Sender: FDA-Public Use
  Company Number: ES-SA-2018SA048981

PATIENT
  Age: 52 Year
  Sex: Female

DRUGS (5)
  1. SOLOSTAR [Suspect]
     Active Substance: DEVICE
     Indication: TYPE 2 DIABETES MELLITUS
     Dates: start: 2015, end: 20180215
  2. LANTUS SOLOSTAR [Suspect]
     Active Substance: INSULIN GLARGINE
     Indication: TYPE 2 DIABETES MELLITUS
     Dosage: ONCE DAILY ACCORDING TO GLYCEMIA
     Route: 051
     Dates: start: 2015, end: 20180215
  3. TRULICITY [Concomitant]
     Active Substance: DULAGLUTIDE
     Indication: TYPE 2 DIABETES MELLITUS
     Route: 065
  4. SOLOSTAR [Suspect]
     Active Substance: DEVICE
     Indication: TYPE 2 DIABETES MELLITUS
     Dates: start: 2015, end: 20180215
  5. LANTUS SOLOSTAR [Suspect]
     Active Substance: INSULIN GLARGINE
     Indication: TYPE 2 DIABETES MELLITUS
     Dosage: ONCE DAILY ACCORDING TO GLYCEMIA
     Route: 051
     Dates: start: 2015, end: 20180215

REACTIONS (5)
  - Abdominal discomfort [Recovered/Resolved]
  - Expired product administered [Unknown]
  - Vision blurred [Not Recovered/Not Resolved]
  - Abdominal pain upper [Recovered/Resolved]
  - Blood glucose increased [Not Recovered/Not Resolved]

NARRATIVE: CASE EVENT DATE: 20180215
